FAERS Safety Report 5397579-2 (Version None)
Quarter: 2007Q3

REPORT INFORMATION
  Report Type: 
  Country: None (occurrence: None)
  Receive Date: 20070726
  Receipt Date: 20070717
  Transmission Date: 20080115
  Serious: Yes (Other)
  Sender: FDA-Public Use
  Company Number: NL-ROCHE-507469

PATIENT
  Age: 19 Year
  Sex: Female
  Weight: 75 kg

DRUGS (3)
  1. LARIAM [Suspect]
     Indication: MALARIA PROPHYLAXIS
     Route: 048
     Dates: start: 20070513, end: 20070527
  2. HEPATITIS A VACCINE/HEPATITIS B VACCINE [Concomitant]
     Indication: PROPHYLAXIS
     Dates: start: 20070524, end: 20070524
  3. MICROGYNON [Concomitant]
     Dosage: DOSAGE REGIMEN REPORTED AS 1X/1 CYCLICAL.
     Route: 048

REACTIONS (5)
  - BONE PAIN [None]
  - DIARRHOEA [None]
  - DISTURBANCE IN ATTENTION [None]
  - NIGHTMARE [None]
  - PSYCHOTIC DISORDER [None]
